FAERS Safety Report 26068149 (Version 1)
Quarter: 2025Q4

REPORT INFORMATION
  Report Type: Report from Study
  Country: US (occurrence: US)
  Receive Date: 20251120
  Receipt Date: 20251120
  Transmission Date: 20260119
  Serious: Yes (Other)
  Sender: ABBVIE
  Company Number: US-ABBVIE-6553349

PATIENT
  Age: 66 Year
  Sex: Female
  Weight: 81.193 kg

DRUGS (1)
  1. SKYRIZI [Suspect]
     Active Substance: RISANKIZUMAB-RZAA
     Indication: Psoriatic arthropathy
     Route: 058
     Dates: start: 20240408

REACTIONS (6)
  - Nasopalatine duct cyst [Recovering/Resolving]
  - Feeding disorder [Unknown]
  - Weight decreased [Unknown]
  - Immune system disorder [Recovering/Resolving]
  - Infection [Recovering/Resolving]
  - Swelling [Recovering/Resolving]

NARRATIVE: CASE EVENT DATE: 20240101
